FAERS Safety Report 11504021 (Version 2)
Quarter: 2015Q4

REPORT INFORMATION
  Report Type: Spontaneous
  Country: AR (occurrence: AR)
  Receive Date: 20150914
  Receipt Date: 20151007
  Transmission Date: 20160304
  Serious: Yes (Other)
  Sender: FDA-Public Use
  Company Number: AR-PFIZER INC-2015296257

PATIENT
  Age: 69 Year
  Sex: Female

DRUGS (1)
  1. SUTENT [Suspect]
     Active Substance: SUNITINIB MALATE
     Indication: METASTATIC RENAL CELL CARCINOMA
     Dosage: 50 MG, CYCLIC (4/2 SCHEME)
     Dates: start: 20141120

REACTIONS (4)
  - Abasia [Recovering/Resolving]
  - Osteoporosis [Recovering/Resolving]
  - Asthenia [Recovering/Resolving]
  - Spinal compression fracture [Unknown]

NARRATIVE: CASE EVENT DATE: 201508
